FAERS Safety Report 6169730-8 (Version None)
Quarter: 2009Q2

REPORT INFORMATION
  Report Type: 
  Country: None (occurrence: None)
  Receive Date: 20090424
  Receipt Date: 20090213
  Transmission Date: 20091009
  Serious: No
  Sender: FDA-Public Use
  Company Number: ALL1-2009-00380

PATIENT
  Age: 21 Year
  Sex: Female
  Weight: 62.1 kg

DRUGS (2)
  1. VYVANSE [Suspect]
     Indication: ATTENTION DEFICIT/HYPERACTIVITY DISORDER
     Dosage: 30 MG, 1X/DAY:QD, ORAL ; 60 MG (2 X 30MG CAPSULES), ONE DOSE, ORAL
     Route: 048
     Dates: start: 20090211, end: 20090211
  2. VYVANSE [Suspect]
     Indication: ATTENTION DEFICIT/HYPERACTIVITY DISORDER
     Dosage: 30 MG, 1X/DAY:QD, ORAL ; 60 MG (2 X 30MG CAPSULES), ONE DOSE, ORAL
     Route: 048
     Dates: start: 20080901

REACTIONS (7)
  - DRUG INEFFECTIVE [None]
  - FEELING ABNORMAL [None]
  - HUNGER [None]
  - INTENTIONAL DRUG MISUSE [None]
  - PAINFUL RESPIRATION [None]
  - SOMNOLENCE [None]
  - WEIGHT DECREASED [None]
